FAERS Safety Report 19189597 (Version 8)
Quarter: 2022Q2

REPORT INFORMATION
  Report Type: Report from Study
  Country: US (occurrence: US)
  Receive Date: 20210428
  Receipt Date: 20220509
  Transmission Date: 20220720
  Serious: No
  Sender: FDA-Public Use
  Company Number: NVSC2021US090549

PATIENT
  Age: 52 Year
  Sex: Female

DRUGS (10)
  1. KESIMPTA [Suspect]
     Active Substance: OFATUMUMAB
     Indication: Multiple sclerosis
     Dosage: QMO
     Route: 058
     Dates: start: 20210413
  2. KESIMPTA [Suspect]
     Active Substance: OFATUMUMAB
     Dosage: 20MG/0.4ML, QMO (STARTING AT WEEK 4)
     Route: 058
  3. BENADRYL [Concomitant]
     Active Substance: DIPHENHYDRAMINE HYDROCHLORIDE
     Indication: Product used for unknown indication
     Dosage: UNK
     Route: 065
     Dates: start: 20210420
  4. LISINOPRIL [Concomitant]
     Active Substance: LISINOPRIL
     Indication: Product used for unknown indication
     Dosage: UNK
     Route: 065
  5. METOPROLOL TARTRATE [Concomitant]
     Active Substance: METOPROLOL TARTRATE
     Indication: Product used for unknown indication
     Dosage: UNK
     Route: 065
  6. AMLODIPINE BESYLATE [Concomitant]
     Active Substance: AMLODIPINE BESYLATE
     Indication: Product used for unknown indication
     Dosage: UNK
     Route: 065
  7. XANAX [Concomitant]
     Active Substance: ALPRAZOLAM
     Indication: Product used for unknown indication
     Dosage: UNK
     Route: 065
  8. NUVIGIL [Concomitant]
     Active Substance: ARMODAFINIL
     Indication: Product used for unknown indication
     Dosage: UNK
     Route: 065
  9. VITAMIN B12 [Concomitant]
     Active Substance: CYANOCOBALAMIN
     Indication: Product used for unknown indication
     Dosage: UNK
     Route: 065
  10. ZYRTEC [Concomitant]
     Active Substance: CETIRIZINE HYDROCHLORIDE
     Indication: Product used for unknown indication
     Dosage: UNK
     Route: 065

REACTIONS (26)
  - Pruritus [Recovering/Resolving]
  - Influenza like illness [Recovered/Resolved]
  - Sensitive skin [Recovered/Resolved]
  - Piloerection [Unknown]
  - Hyperacusis [Recovered/Resolved]
  - Hypoaesthesia [Unknown]
  - Feeling cold [Unknown]
  - Asthenia [Unknown]
  - Nasal congestion [Unknown]
  - Feeling hot [Unknown]
  - Pain [Recovered/Resolved]
  - Erythema [Unknown]
  - Pyrexia [Recovered/Resolved]
  - Bone pain [Unknown]
  - Peroneal nerve palsy [Unknown]
  - Blood blister [Unknown]
  - Back pain [Recovered/Resolved]
  - Functional gastrointestinal disorder [Unknown]
  - Visual impairment [Unknown]
  - Decreased appetite [Unknown]
  - Diarrhoea [Unknown]
  - Nystagmus [Unknown]
  - Headache [Recovered/Resolved]
  - Chills [Unknown]
  - Body temperature increased [Recovered/Resolved]
  - Pyrexia [Recovered/Resolved]

NARRATIVE: CASE EVENT DATE: 20210413
